FAERS Safety Report 23913097 (Version 1)
Quarter: 2024Q2

REPORT INFORMATION
  Report Type: Spontaneous
  Country: ES (occurrence: None)
  Receive Date: 20240529
  Receipt Date: 20240529
  Transmission Date: 20240715
  Serious: Yes (Hospitalization)
  Sender: FDA-Public Use
  Company Number: ES-ARIS GLOBAL-SUP202405-001839

PATIENT
  Age: 45 Year
  Sex: Male

DRUGS (3)
  1. TOPIRAMATE [Suspect]
     Active Substance: TOPIRAMATE
     Indication: Personality disorder
     Dosage: NOT PROVIDED
  2. FLUOXETINE [Concomitant]
     Active Substance: FLUOXETINE HYDROCHLORIDE
     Indication: Personality disorder
     Dosage: NOT PROVIDED
  3. LORAZEPAM [Concomitant]
     Active Substance: LORAZEPAM
     Indication: Personality disorder
     Dosage: NOT PROVIDED

REACTIONS (5)
  - Retrograde amnesia [Not Recovered/Not Resolved]
  - Abnormal behaviour [Recovered/Resolved]
  - Metabolic acidosis [Recovered/Resolved]
  - Suicide attempt [Unknown]
  - Product use in unapproved indication [Unknown]
